FAERS Safety Report 25638941 (Version 1)
Quarter: 2025Q3

REPORT INFORMATION
  Report Type: Report from Study
  Country: US (occurrence: US)
  Receive Date: 20250804
  Receipt Date: 20250804
  Transmission Date: 20251021
  Serious: No
  Sender: LUNDBECK
  Company Number: US-LUNDBECK-DKLU4017687

PATIENT
  Age: 67 Year
  Sex: Female

DRUGS (1)
  1. VYEPTI [Suspect]
     Active Substance: EPTINEZUMAB-JJMR
     Indication: Migraine without aura
     Route: 041
     Dates: start: 20250724

REACTIONS (5)
  - Headache [Unknown]
  - Cough [Unknown]
  - Nasal congestion [Unknown]
  - Constipation [Unknown]
  - Migraine [Unknown]

NARRATIVE: CASE EVENT DATE: 20250724
